FAERS Safety Report 4532869-4 (Version None)
Quarter: 2004Q4

REPORT INFORMATION
  Report Type: 
  Country: None (occurrence: None)
  Receive Date: 20041220
  Receipt Date: 20041213
  Transmission Date: 20050328
  Serious: Yes (Death, Hospitalization)
  Sender: FDA-Public Use
  Company Number: OXCD20040004

PATIENT
  Age: 19 Year
  Sex: Male

DRUGS (3)
  1. OXYCODONE (SAME AS PERCOLONE) [Suspect]
     Dosage: PO
     Route: 048
     Dates: start: 20030101, end: 20030101
  2. CLONAZEPAM [Suspect]
     Dosage: PO
     Route: 048
     Dates: start: 20030101, end: 20030101
  3. ZOLPIDEM [Suspect]
     Dates: start: 20030101, end: 20030101

REACTIONS (4)
  - BODY TEMPERATURE INCREASED [None]
  - CARDIO-RESPIRATORY ARREST [None]
  - MULTIPLE DRUG OVERDOSE INTENTIONAL [None]
  - PUPIL FIXED [None]
